FAERS Safety Report 8885689 (Version 2)
Quarter: 2012Q4

REPORT INFORMATION
  Report Type: 
  Country: US (occurrence: US)
  Receive Date: 20121101
  Receipt Date: 20121213
  Transmission Date: 20130627
  Serious: Yes (Other)
  Sender: FDA-Public Use
  Company Number: US-PFIZER INC-2012267841

PATIENT
  Age: 73 Year
  Sex: Male

DRUGS (3)
  1. VIAGRA [Suspect]
     Dosage: UNK
  2. DIOVAN [Concomitant]
  3. PLAVIX [Concomitant]

REACTIONS (2)
  - Blood pressure decreased [Unknown]
  - Dizziness [Unknown]
